FAERS Safety Report 10242779 (Version 1)
Quarter: 2014Q2

REPORT INFORMATION
  Report Type: Spontaneous
  Country: US (occurrence: US)
  Receive Date: 20140617
  Receipt Date: 20140617
  Transmission Date: 20141212
  Serious: Yes (Other)
  Sender: FDA-Public Use
  Company Number: PHHY2014US071794

PATIENT
  Age: 66 Year
  Sex: Female

DRUGS (17)
  1. FLUOXETINE [Suspect]
     Route: 048
  2. KETOROLAC [Suspect]
     Indication: ANALGESIC THERAPY
     Dosage: 30 MG, UNK
     Route: 030
  3. MULTIVIT//VITAMINS NOS [Suspect]
  4. FISH OIL [Suspect]
     Dosage: 1 G, UNK
  5. LEVOTHYROXINE [Concomitant]
  6. ATORVASTATIN [Concomitant]
  7. SEROQUEL [Concomitant]
  8. CARVEDILOL [Concomitant]
  9. FERROUS SULFATE [Concomitant]
  10. GABAPENTIN [Concomitant]
  11. DOCUSATE [Concomitant]
  12. FENTANYL [Concomitant]
  13. CARISOPRODOL [Concomitant]
  14. OMEPRAZOLE [Concomitant]
  15. SALINE [Concomitant]
  16. METHYLPREDNISOLONE ACETATE [Concomitant]
     Dosage: 80 MG, UNK
  17. LIDOCAINE [Concomitant]

REACTIONS (10)
  - Quadriplegia [Unknown]
  - Hypoaesthesia [Unknown]
  - Muscular weakness [Unknown]
  - Sensory loss [Unknown]
  - Unresponsive to stimuli [Unknown]
  - Hypotonia [Unknown]
  - Monoplegia [Unknown]
  - Extradural haematoma [Unknown]
  - Faecal incontinence [Unknown]
  - Urinary incontinence [Unknown]
